FAERS Safety Report 24541262 (Version 1)
Quarter: 2024Q4

REPORT INFORMATION
  Report Type: Spontaneous
  Country: AT (occurrence: AT)
  Receive Date: 20241023
  Receipt Date: 20241023
  Transmission Date: 20250114
  Serious: Yes (Other)
  Sender: ABBVIE
  Company Number: AT-ABBVIE-5967212

PATIENT
  Age: 50 Year
  Sex: Male

DRUGS (4)
  1. HUMIRA [Suspect]
     Active Substance: ADALIMUMAB
     Indication: Crohn^s disease
     Route: 058
  2. SKYRIZI [Suspect]
     Active Substance: RISANKIZUMAB-RZAA
     Indication: Crohn^s disease
     Route: 058
     Dates: start: 202311
  3. METHOTREXATE SODIUM [Concomitant]
     Active Substance: METHOTREXATE SODIUM
     Indication: Product used for unknown indication
     Dates: start: 2005
  4. VEDOLIZUMAB [Concomitant]
     Active Substance: VEDOLIZUMAB
     Indication: Product used for unknown indication
     Dates: start: 2016

REACTIONS (10)
  - Ileostomy [Unknown]
  - Infestation [Unknown]
  - Large intestinal stenosis [Unknown]
  - Weight increased [Unknown]
  - Frequent bowel movements [Unknown]
  - General physical health deterioration [Unknown]
  - Diarrhoea [Unknown]
  - Colitis [Unknown]
  - Gastrointestinal wall thickening [Unknown]
  - Ileostomy closure [Unknown]

NARRATIVE: CASE EVENT DATE: 20220101
